FAERS Safety Report 8772062 (Version 3)
Quarter: 2013Q4

REPORT INFORMATION
  Report Type: Spontaneous
  Country: US (occurrence: US)
  Receive Date: 20120906
  Receipt Date: 20131031
  Transmission Date: 20140711
  Serious: Yes (Hospitalization, Other)
  Sender: FDA-Public Use
  Company Number: US-009507513-1208USA011201

PATIENT
  Sex: Male
  Weight: 63.49 kg

DRUGS (5)
  1. PEPCID [Suspect]
     Indication: GASTROOESOPHAGEAL REFLUX DISEASE
     Dosage: 20 MG, BID
     Route: 048
     Dates: start: 20120730
  2. PEPCID [Suspect]
     Indication: PANCREATIC DISORDER
  3. ANALGESIC (UNSPECIFIED) [Suspect]
     Indication: PAIN
  4. PHENOBARBITAL [Concomitant]
     Dosage: UNK, TID
  5. MYSOLINE [Concomitant]
     Dosage: 250 MG, BID

REACTIONS (6)
  - Abdominal pain [Not Recovered/Not Resolved]
  - Drug ineffective [Unknown]
  - Blood test abnormal [Unknown]
  - Malaise [Recovered/Resolved]
  - Feeling abnormal [Recovered/Resolved]
  - Hypoaesthesia [Recovered/Resolved]
